FAERS Safety Report 15410712 (Version 1)
Quarter: 2018Q3

REPORT INFORMATION
  Report Type: Spontaneous
  Country: SE (occurrence: SE)
  Receive Date: 20180921
  Receipt Date: 20180921
  Transmission Date: 20181010
  Serious: Yes (Hospitalization)
  Sender: FDA-Public Use
  Company Number: SE-TEVA-2018-SE-957394

PATIENT
  Age: 73 Year
  Sex: Female

DRUGS (1)
  1. LINEZOLID. [Suspect]
     Active Substance: LINEZOLID
     Indication: OSTEITIS
     Route: 065
     Dates: end: 20180705

REACTIONS (1)
  - Sideroblastic anaemia [Recovered/Resolved]

NARRATIVE: CASE EVENT DATE: 20180704
